FAERS Safety Report 24328507 (Version 1)
Quarter: 2024Q3

REPORT INFORMATION
  Report Type: Spontaneous
  Country: GB (occurrence: GB)
  Receive Date: 20240917
  Receipt Date: 20240917
  Transmission Date: 20241016
  Serious: Yes (Other)
  Sender: TEVA
  Company Number: GB-MHRA-TPP47303509C9397588YC1725631006096

PATIENT
  Age: 55 Year
  Sex: Male
  Weight: 65 kg

DRUGS (10)
  1. PREDNISOLONE [Suspect]
     Active Substance: PREDNISOLONE
     Indication: Chronic obstructive pulmonary disease
     Route: 048
     Dates: start: 20240802, end: 20240808
  2. MOMETASONE [Concomitant]
     Active Substance: MOMETASONE
     Indication: Ill-defined disorder
     Dosage: EACH NOSTRIL,
     Route: 045
     Dates: start: 20240906
  3. SEA WATER [Concomitant]
     Active Substance: SEA WATER
     Indication: Ill-defined disorder
     Dosage: EACH NOSTRIL,
     Route: 045
     Dates: start: 20240906
  4. CODEINE PHOSPHATE [Concomitant]
     Active Substance: CODEINE PHOSPHATE
     Indication: Ill-defined disorder
     Dosage: TAKE ONE OR TWO UP TO 4 TIMES/DAY AS REQUIRED
     Route: 048
     Dates: start: 20231115
  5. BETAMETHASONE SODIUM PHOSPHATE [Concomitant]
     Active Substance: BETAMETHASONE SODIUM PHOSPHATE
     Indication: Ill-defined disorder
     Dosage: EACH NOSTRIL
     Route: 045
     Dates: start: 20240802, end: 20240830
  6. AMOXICILLIN\CLAVULANIC ACID [Concomitant]
     Active Substance: AMOXICILLIN\CLAVULANIC ACID
     Indication: Ill-defined disorder
     Route: 048
     Dates: start: 20240802, end: 20240809
  7. ETORICOXIB [Concomitant]
     Active Substance: ETORICOXIB
     Indication: Ill-defined disorder
     Route: 048
     Dates: start: 20231115
  8. CALCIUM CARBONATE [Concomitant]
     Active Substance: CALCIUM CARBONATE
     Indication: Ill-defined disorder
     Route: 048
     Dates: start: 20231115
  9. FEXOFENADINE [Concomitant]
     Active Substance: FEXOFENADINE HYDROCHLORIDE
     Indication: Ill-defined disorder
     Route: 048
     Dates: start: 20240906
  10. OMEPRAZOLE [Concomitant]
     Active Substance: OMEPRAZOLE
     Indication: Ill-defined disorder
     Dates: start: 20231115

REACTIONS (2)
  - Monoparesis [Recovering/Resolving]
  - Myopathy [Recovering/Resolving]

NARRATIVE: CASE EVENT DATE: 20240906
